FAERS Safety Report 6359750-2 (Version None)
Quarter: 2009Q3

REPORT INFORMATION
  Report Type: 
  Country: None (occurrence: None)
  Receive Date: 20090917
  Receipt Date: 20090907
  Transmission Date: 20100115
  Serious: Yes (Hospitalization)
  Sender: FDA-Public Use
  Company Number: FR-ELI_LILLY_AND_COMPANY-FR200909001370

PATIENT
  Sex: Female

DRUGS (4)
  1. ZYPREXA [Suspect]
     Indication: HALLUCINATION
     Dosage: 15 MG, DAILY (1/D)
     Route: 048
  2. EFFEXOR [Concomitant]
     Dosage: 2 D/F, DAILY (1/D)
     Route: 048
  3. ALDACTAZINE [Concomitant]
     Dosage: 0.5 UNK, DAILY (1/D)
     Route: 048
     Dates: end: 20090601
  4. PHYSIOTENS [Concomitant]
     Dosage: 0.2 MG, DAILY (1/D)
     Route: 048
     Dates: end: 20090601

REACTIONS (6)
  - APRAXIA [None]
  - DEHYDRATION [None]
  - FALL [None]
  - OEDEMA PERIPHERAL [None]
  - ORTHOSTATIC HYPOTENSION [None]
  - RHABDOMYOLYSIS [None]
